FAERS Safety Report 5280990-8 (Version None)
Quarter: 2007Q1

REPORT INFORMATION
  Report Type: 
  Country: None (occurrence: None)
  Receive Date: 20061229
  Receipt Date: 20061003
  Transmission Date: 20070707
  Serious: No
  Sender: FDA-Public Use
  Company Number: 2006UW19224

PATIENT
  Age: 60 Year
  Sex: Male

DRUGS (2)
  1. CRESTOR [Suspect]
     Dosage: 20 MG PO
     Route: 048
  2. IBUPROFEN [Concomitant]

REACTIONS (2)
  - OEDEMA PERIPHERAL [None]
  - PROTEIN URINE PRESENT [None]
